FAERS Safety Report 15619346 (Version 1)
Quarter: 2018Q4

REPORT INFORMATION
  Report Type: Spontaneous
  Country: GB (occurrence: GB)
  Receive Date: 20181115
  Receipt Date: 20181115
  Transmission Date: 20190205
  Serious: Yes (Hospitalization, Other)
  Sender: FDA-Public Use
  Company Number: GB-ACCORD-091974

PATIENT
  Age: 3 Year
  Sex: Male
  Weight: 18 kg

DRUGS (5)
  1. METHOTREXATE. [Suspect]
     Active Substance: METHOTREXATE
     Indication: ACUTE LEUKAEMIA
     Dosage: CUMULATIVE DOSE OF INTRATHECAL AND ORAL METHOTREXATE
     Route: 037
     Dates: start: 20140207, end: 20180719
  2. ALLOPURINOL. [Concomitant]
     Active Substance: ALLOPURINOL
  3. DEXAMETHASONE. [Concomitant]
     Active Substance: DEXAMETHASONE
  4. VINCRISTINE [Concomitant]
     Active Substance: VINCRISTINE
  5. MERCAPTOPURINE/MERCAPTOPURINE ANHYDROUS [Concomitant]

REACTIONS (2)
  - Microangiopathy [Recovering/Resolving]
  - Seizure [Unknown]

NARRATIVE: CASE EVENT DATE: 20180202
